FAERS Safety Report 9171175 (Version 2)
Quarter: 2013Q1

REPORT INFORMATION
  Report Type: Report from Study
  Country: US (occurrence: US)
  Receive Date: 20130319
  Receipt Date: 20130325
  Transmission Date: 20140127
  Serious: Yes (Hospitalization)
  Sender: FDA-Public Use
  Company Number: US-ROCHE-1202280

PATIENT
  Age: 47 Year
  Sex: Male

DRUGS (15)
  1. PEGASYS [Suspect]
     Indication: HEPATITIS C
     Route: 058
     Dates: start: 20121211, end: 20130222
  2. COPEGUS [Suspect]
     Indication: HEPATITIS C
     Route: 048
     Dates: start: 20121211, end: 20130222
  3. TELAPREVIR [Suspect]
     Indication: HEPATITIS C
     Route: 048
     Dates: start: 20121211, end: 20130122
  4. HYDROCODONE/ACETAMINOPHEN [Concomitant]
     Indication: PAIN
     Dosage: DOSE: 5-325 MG
     Route: 048
  5. SPIRONOLACTONE [Concomitant]
     Route: 048
  6. FUROSEMIDE [Concomitant]
     Route: 048
  7. OMEPRAZOLE [Concomitant]
     Route: 048
  8. LACTULOSE [Concomitant]
     Dosage: STRENGTH: 10G/15 ML
     Route: 048
  9. DICYCLOMINE [Concomitant]
     Route: 048
  10. PROPRANOLOL [Concomitant]
     Route: 048
  11. ONDANSETRON [Concomitant]
     Route: 048
  12. TAMSULOSIN [Concomitant]
     Route: 048
  13. MAGNESIUM OXIDE [Concomitant]
     Route: 048
  14. ALBUTEROL/IPRATROPIUM [Concomitant]
     Dosage: STRENGTH:100-20 MCG, PUFF
     Route: 065
  15. SODIUM CHLORIDE [Concomitant]
     Route: 045

REACTIONS (4)
  - Ammonia increased [Unknown]
  - Respiratory distress [Not Recovered/Not Resolved]
  - Hepatic encephalopathy [Not Recovered/Not Resolved]
  - Hyperbilirubinaemia [Not Recovered/Not Resolved]
